FAERS Safety Report 11737091 (Version 2)
Quarter: 2015Q4

REPORT INFORMATION
  Report Type: Report from Study
  Country: PR (occurrence: PR)
  Receive Date: 20151113
  Receipt Date: 20151124
  Transmission Date: 20160304
  Serious: Yes (Hospitalization, Other)
  Sender: FDA-Public Use
  Company Number: PR-ABBVIE-15K-131-1383178-00

PATIENT
  Age: 73 Year
  Sex: Male
  Weight: 70.37 kg

DRUGS (3)
  1. HUMIRA [Suspect]
     Active Substance: ADALIMUMAB
     Indication: PSORIASIS
     Route: 058
     Dates: start: 201402
  2. HUMIRA [Suspect]
     Active Substance: ADALIMUMAB
     Indication: PSORIASIS
     Route: 058
     Dates: start: 20150205, end: 20150421
  3. HUMIRA [Suspect]
     Active Substance: ADALIMUMAB
     Route: 058
     Dates: start: 20150423

REACTIONS (8)
  - Diarrhoea [Recovered/Resolved]
  - Gastrointestinal inflammation [Unknown]
  - Colitis [Not Recovered/Not Resolved]
  - Enteritis [Recovered/Resolved]
  - Large intestine perforation [Not Recovered/Not Resolved]
  - Vomiting [Recovered/Resolved]
  - Blood potassium increased [Unknown]
  - Diarrhoea [Recovered/Resolved]

NARRATIVE: CASE EVENT DATE: 2015
